FAERS Safety Report 20429950 (Version 1)
Quarter: 2022Q1

REPORT INFORMATION
  Report Type: Report from Study
  Country: FR (occurrence: FR)
  Receive Date: 20220204
  Receipt Date: 20220204
  Transmission Date: 20220423
  Serious: Yes (Hospitalization)
  Sender: FDA-Public Use
  Company Number: FR-SERVIER-S19003630

PATIENT

DRUGS (8)
  1. ONCASPAR [Suspect]
     Active Substance: PEGASPARGASE
     Indication: B precursor type acute leukaemia
     Dosage: 1928 IU (D8)
     Route: 042
     Dates: start: 20181115, end: 20181115
  2. METHOTREXATE [Suspect]
     Active Substance: METHOTREXATE
     Indication: B precursor type acute leukaemia
     Dosage: 12 MG DAILY, ON D2 AND D30
     Route: 037
     Dates: start: 20181106
  3. METHOTREXATE [Suspect]
     Active Substance: METHOTREXATE
     Dosage: 19.2 MG DAILY, ON D8, D15 AND D22
     Route: 048
     Dates: start: 20181112
  4. DEXAMETHASONE SODIUM PHOSPHATE [Suspect]
     Active Substance: DEXAMETHASONE SODIUM PHOSPHATE
     Indication: B precursor type acute leukaemia
     Dosage: 4.6 MG DAILY, ON D1-D5
     Route: 048
     Dates: start: 20181105, end: 20181109
  5. MERCAPTOPURINE [Suspect]
     Active Substance: MERCAPTOPURINE
     Indication: B precursor type acute leukaemia
     Dosage: 38.5 MG DAILY, ON D1-D21
     Route: 048
     Dates: start: 20191105
  6. TN UNSPECIFIED [Concomitant]
     Indication: Pain
     Dosage: 1080 MG, QD
     Route: 042
     Dates: start: 20180916
  7. FLUCONAZOLE [Concomitant]
     Active Substance: FLUCONAZOLE
     Indication: Infection
     Dosage: 200 MG, QD
     Route: 048
     Dates: start: 20181107, end: 20181201
  8. BACTRIM [Concomitant]
     Active Substance: SULFAMETHOXAZOLE\TRIMETHOPRIM
     Indication: Infection
     Dosage: 400 MG, QD
     Route: 048
     Dates: start: 20180918

REACTIONS (3)
  - Coagulation test abnormal [Recovering/Resolving]
  - Infection [Recovering/Resolving]
  - Pancreatitis [Recovering/Resolving]

NARRATIVE: CASE EVENT DATE: 20181112
